FAERS Safety Report 22162558 (Version 1)
Quarter: 2023Q1

REPORT INFORMATION
  Report Type: Spontaneous
  Country: CH (occurrence: CH)
  Receive Date: 20230331
  Receipt Date: 20230331
  Transmission Date: 20230418
  Serious: Yes (Other)
  Sender: FDA-Public Use
  Company Number: None

PATIENT
  Age: 82 Year
  Sex: Male
  Weight: 74 kg

DRUGS (5)
  1. OPTIRAY 300 [Suspect]
     Active Substance: IOVERSOL
     Indication: Angiocardiogram
     Dates: start: 20230215, end: 20230215
  2. ASPIRIN [Concomitant]
     Active Substance: ASPIRIN
     Indication: Product used for unknown indication
     Route: 048
  3. CLOPIDOGREL [Concomitant]
     Active Substance: CLOPIDOGREL BISULFATE
     Indication: Product used for unknown indication
  4. ROSUVASTATIN [Concomitant]
     Active Substance: ROSUVASTATIN
     Indication: Product used for unknown indication
  5. MOLSIDOMINE [Concomitant]
     Active Substance: MOLSIDOMINE
     Indication: Product used for unknown indication

REACTIONS (12)
  - Overdose [Recovered/Resolved]
  - Disorientation [Unknown]
  - Lack of spontaneous speech [Unknown]
  - Abnormal behaviour [Unknown]
  - Ischaemic cerebral infarction [Unknown]
  - Facial paresis [Unknown]
  - Neurologic neglect syndrome [Unknown]
  - Hemianopia [Unknown]
  - Seizure [Unknown]
  - Aphasia [Recovered/Resolved]
  - Dysphagia [Unknown]
  - Dysphonia [Unknown]

NARRATIVE: CASE EVENT DATE: 20230215
